FAERS Safety Report 7932096-4 (Version None)
Quarter: 2011Q4

REPORT INFORMATION
  Report Type: 
  Country: None (occurrence: None)
  Receive Date: 20111121
  Receipt Date: 20110822
  Transmission Date: 20120403
  Serious: No
  Sender: FDA-Public Use
  Company Number: US-BAYER-2011-079982

PATIENT
  Sex: Female

DRUGS (4)
  1. ALEVE (CAPLET) [Suspect]
     Indication: PAIN
  2. CELEBREX [Concomitant]
     Indication: PAIN
  3. ALEVE (CAPLET) [Suspect]
     Indication: ARTHRITIS
  4. CELEBREX [Concomitant]
     Indication: ARTHRITIS

REACTIONS (1)
  - ARTHRITIS [None]
